FAERS Safety Report 21962575 (Version 3)
Quarter: 2023Q2

REPORT INFORMATION
  Report Type: Report from Study
  Country: PR (occurrence: PR)
  Receive Date: 20230207
  Receipt Date: 20230414
  Transmission Date: 20230721
  Serious: Yes (Death, Life-Threatening)
  Sender: FDA-Public Use
  Company Number: PR-PFIZER INC-PV202200059749

PATIENT
  Age: 76 Year
  Sex: Male

DRUGS (18)
  1. INLYTA [Suspect]
     Active Substance: AXITINIB
     Dosage: 5 MG, 2X/DAY
     Route: 048
     Dates: start: 20220827
  2. INLYTA [Suspect]
     Active Substance: AXITINIB
     Dosage: EVERY 12 HOURS
     Route: 048
     Dates: start: 20220828, end: 20220904
  3. INLYTA [Suspect]
     Active Substance: AXITINIB
     Dosage: 1 MG, DAILY [1 TABLET (1 MG) DAILY]
     Route: 048
     Dates: start: 20220822, end: 20230113
  4. INLYTA [Suspect]
     Active Substance: AXITINIB
     Dosage: 3 MG, BID
     Route: 048
     Dates: start: 20220822, end: 20230113
  5. XARELTO [Concomitant]
     Active Substance: RIVAROXABAN
     Dosage: 20 MG
  6. FINASTERIDE [Concomitant]
     Active Substance: FINASTERIDE
     Dosage: 5 MG
  7. DORZOLAMIDE [Concomitant]
     Active Substance: DORZOLAMIDE
     Dosage: UNK, (2%)
  8. BRIMONIDINE [Concomitant]
     Active Substance: BRIMONIDINE TARTRATE
     Dosage: UNK, (0.2 %)
  9. TIMOLOL MALEATE [Concomitant]
     Active Substance: TIMOLOL MALEATE
     Dosage: UNK, (0.5%)
  10. ROSUVASTATIN [Concomitant]
     Active Substance: ROSUVASTATIN
     Dosage: 10 MG
  11. DOLOGESIC DF [Concomitant]
     Active Substance: ACETAMINOPHEN\PHENYLTOLOXAMINE CITRATE
     Dosage: UNK, (1MG - 500MG)
  12. GLIPIZIDE [Concomitant]
     Active Substance: GLIPIZIDE
     Dosage: 10 MG
  13. METFORMIN [Concomitant]
     Active Substance: METFORMIN HYDROCHLORIDE
     Dosage: 1000 MG
  14. JARDIANCE [Concomitant]
     Active Substance: EMPAGLIFLOZIN
     Dosage: 25 MG
  15. VALSARTAN [Concomitant]
     Active Substance: VALSARTAN
     Dosage: 160 MG
  16. GABAPENTIN [Concomitant]
     Active Substance: GABAPENTIN
     Dosage: 300 MG
  17. GEMFIBROZIL [Concomitant]
     Active Substance: GEMFIBROZIL
     Dosage: 600 MG
  18. XGEVA [Concomitant]
     Active Substance: DENOSUMAB
     Dosage: UNK (120/1.7ML)

REACTIONS (9)
  - Death [Fatal]
  - Swelling [Unknown]
  - Urinary tract infection [Unknown]
  - Inflammation [Unknown]
  - Dyspnoea [Unknown]
  - Nausea [Unknown]
  - Abdominal pain upper [Unknown]
  - Decreased appetite [Unknown]
  - Confusional state [Unknown]

NARRATIVE: CASE EVENT DATE: 20220101
